FAERS Safety Report 5222972-8 (Version None)
Quarter: 2007Q1

REPORT INFORMATION
  Report Type: 
  Country: None (occurrence: None)
  Receive Date: 20070129
  Receipt Date: 20061114
  Transmission Date: 20070707
  Serious: No
  Sender: FDA-Public Use
  Company Number: DE-BAXTER-2006BH012374

PATIENT
  Age: 10 Month
  Sex: Male

DRUGS (1)
  1. FEIBA VH IMMUNO [Suspect]
     Indication: FACTOR VIII INHIBITION
     Route: 042
     Dates: start: 20060802, end: 20060802

REACTIONS (5)
  - CHOKING [None]
  - DRUG INTOLERANCE [None]
  - HYPERHIDROSIS [None]
  - NAUSEA [None]
  - OBSTRUCTION [None]
